FAERS Safety Report 6698074-0 (Version None)
Quarter: 2010Q2

REPORT INFORMATION
  Report Type: 
  Country: None (occurrence: None)
  Receive Date: 20100427
  Receipt Date: 20100426
  Transmission Date: 20101027
  Serious: Yes (Hospitalization, Other)
  Sender: FDA-Public Use
  Company Number: US-PFIZER INC-2003015384

PATIENT
  Sex: Male
  Weight: 117.9 kg

DRUGS (9)
  1. VFEND [Suspect]
     Indication: FUNGAL INFECTION
     Route: 048
     Dates: start: 20021003, end: 20030101
  2. VFEND [Suspect]
     Route: 042
     Dates: start: 20020901, end: 20020101
  3. ESOMEPRAZOLE [Concomitant]
     Route: 065
  4. METOPROLOL SUCCINATE [Concomitant]
     Route: 065
  5. LEVOFLOXACIN [Concomitant]
     Route: 065
  6. VALSARTAN [Concomitant]
     Route: 065
  7. NICOTINIC ACID [Concomitant]
     Route: 065
  8. FOLIC ACID [Concomitant]
     Route: 065
  9. MAGNESIUM [Concomitant]
     Route: 065

REACTIONS (12)
  - ATRIAL FIBRILLATION [None]
  - BONE MARROW TRANSPLANT [None]
  - COLOUR BLINDNESS ACQUIRED [None]
  - FUNGAL INFECTION [None]
  - GRAFT VERSUS HOST DISEASE [None]
  - HEPATIC ENZYME INCREASED [None]
  - HERPES VIRUS INFECTION [None]
  - PHOTOPSIA [None]
  - PLATELET COUNT DECREASED [None]
  - RASH [None]
  - TOE AMPUTATION [None]
  - WEIGHT DECREASED [None]
